FAERS Safety Report 13508630 (Version 3)
Quarter: 2017Q2

REPORT INFORMATION
  Report Type: Spontaneous
  Country: US (occurrence: US)
  Receive Date: 20170503
  Receipt Date: 20170606
  Transmission Date: 20170830
  Serious: Yes (Other)
  Sender: FDA-Public Use
  Company Number: US-GLAXOSMITHKLINE-US2017GSK063482

PATIENT
  Age: 37 Year
  Sex: Female
  Weight: 93.15 kg

DRUGS (5)
  1. LAMICTAL [Suspect]
     Active Substance: LAMOTRIGINE
     Indication: BIPOLAR I DISORDER
     Dosage: 200 MG, UNK
     Route: 048
     Dates: start: 20170117, end: 20170327
  2. ASPIRIN 81 [Concomitant]
     Active Substance: ASPIRIN
  3. PAROXETINE HYDROCHLORIDE. [Concomitant]
     Active Substance: PAROXETINE HYDROCHLORIDE
  4. LISINOPRIL HCTZ [Concomitant]
     Active Substance: HYDROCHLOROTHIAZIDE\LISINOPRIL
  5. LAMOTRIGINE. [Concomitant]
     Active Substance: LAMOTRIGINE

REACTIONS (62)
  - Palpitations [Unknown]
  - Pulse pressure decreased [Unknown]
  - Cough [Unknown]
  - Abdominal pain [Unknown]
  - Hypotension [Unknown]
  - Dermatitis contact [Unknown]
  - Contusion [Unknown]
  - Fatigue [Unknown]
  - Photophobia [Unknown]
  - Mania [Unknown]
  - Depressed level of consciousness [Unknown]
  - Loss of consciousness [Unknown]
  - Drug eruption [Not Recovered/Not Resolved]
  - Blister [Unknown]
  - Muscle spasms [Unknown]
  - Dizziness [Unknown]
  - Ill-defined disorder [Unknown]
  - Insomnia [Unknown]
  - Haemorrhage [Unknown]
  - Fatigue [Not Recovered/Not Resolved]
  - Tachycardia [Unknown]
  - Suicidal ideation [Unknown]
  - Rash [Not Recovered/Not Resolved]
  - Asthenia [Unknown]
  - Anxiety [Unknown]
  - Panic attack [Unknown]
  - Headache [Unknown]
  - Ocular hyperaemia [Unknown]
  - Dyspnoea [Unknown]
  - Face oedema [Unknown]
  - Urticaria [Unknown]
  - Lymphadenopathy [Unknown]
  - Vomiting [Unknown]
  - Myalgia [Unknown]
  - Migraine [Unknown]
  - Oropharyngeal swelling [Unknown]
  - Sinusitis [Unknown]
  - Depression [Unknown]
  - Sinusitis [Unknown]
  - Loss of personal independence in daily activities [Unknown]
  - Pruritus generalised [Unknown]
  - Paraesthesia [Unknown]
  - Sneezing [Unknown]
  - Coordination abnormal [Unknown]
  - Restlessness [Unknown]
  - Chills [Unknown]
  - Musculoskeletal stiffness [Unknown]
  - Rhinitis [Unknown]
  - Throat tightness [Unknown]
  - Blepharospasm [Unknown]
  - Confusional state [Unknown]
  - Vulvovaginal mycotic infection [Unknown]
  - Malaise [Unknown]
  - Pyrexia [Unknown]
  - Mental impairment [Unknown]
  - Angioedema [Unknown]
  - Eye pain [Unknown]
  - Rhinorrhoea [Unknown]
  - Diarrhoea [Unknown]
  - Rhinorrhoea [Unknown]
  - Impulsive behaviour [Unknown]
  - Nausea [Unknown]

NARRATIVE: CASE EVENT DATE: 20170118
